FAERS Safety Report 8549480-0 (Version None)
Quarter: 2012Q3

REPORT INFORMATION
  Report Type: 
  Country: None (occurrence: None)
  Receive Date: 20120730
  Receipt Date: 20120717
  Transmission Date: 20120928
  Serious: Yes (Hospitalization, Other)
  Sender: FDA-Public Use
  Company Number: FR-AMGEN-FRASP2012033164

PATIENT
  Age: 67 Year
  Sex: Female

DRUGS (18)
  1. FLECAINIDE ACETATE [Concomitant]
     Dosage: 100 MG DAILY,SUSTAINED RELEASE CAPSULES
  2. PANTOPRAZOLE [Concomitant]
     Dosage: 20 MG DAILY
  3. LEVOTHYROXINE SODIUM [Concomitant]
     Dosage: 125 MUG DAILY
  4. ZOLPIDEM [Concomitant]
     Dosage: 10 MG DAILY
  5. PERINDOPRIL ERBUMINE [Concomitant]
     Dosage: 2 MG DAILY
  6. PREDNISONE TAB [Concomitant]
     Dosage: 2.5 MG, DAILY
  7. PREDNISONE [Concomitant]
     Dosage: 5MG, DAILY
  8. ZOLPIDEM [Concomitant]
     Dosage: 10 MG DAILY
  9. INDAPAMIDE [Concomitant]
     Dosage: 1 DF DAILY
  10. LEVOTHYROXINE SODIUM [Concomitant]
     Dosage: 125 MUG DAILY
  11. INDAPAMIDE [Concomitant]
  12. PREDNISONE [Concomitant]
     Dosage: 5MG, DAILY
  13. REMICADE [Suspect]
     Indication: RHEUMATOID ARTHRITIS
     Dosage: 300 MG EVERY 7 WEEKS
     Route: 042
     Dates: start: 20020101, end: 20100601
  14. METHOTREXATE SODIUM [Suspect]
     Indication: RHEUMATOID ARTHRITIS
     Dosage: 15 MG, WEEKLY
     Route: 048
     Dates: start: 19980101, end: 20120401
  15. PERINDOPRIL ERBUMINE [Concomitant]
     Dosage: 2 MG DAILY
  16. FLECAINIDE ACETATE [Concomitant]
  17. ENBREL [Suspect]
     Indication: RHEUMATOID ARTHRITIS
     Dosage: UNK
     Route: 058
     Dates: start: 20100601, end: 20101001
  18. ORENCIA [Suspect]
     Indication: RHEUMATOID ARTHRITIS
     Dosage: 750 MG IN PERFUSION ON 11OCT2010, THEN ON 25OCT2010 AND THEN MONTHLY
     Route: 042
     Dates: start: 20101011, end: 20120323

REACTIONS (6)
  - GOITRE [None]
  - RIGHT VENTRICULAR FAILURE [None]
  - ACUTE MYELOID LEUKAEMIA [None]
  - CEREBROVASCULAR ACCIDENT [None]
  - ARTHROPATHY [None]
  - LUNG DISORDER [None]
